FAERS Safety Report 15553825 (Version 1)
Quarter: 2018Q4

REPORT INFORMATION
  Report Type: Spontaneous
  Country: US (occurrence: US)
  Receive Date: 20181026
  Receipt Date: 20181026
  Transmission Date: 20190205
  Serious: No
  Sender: FDA-Public Use
  Company Number: US-SA-2018SA295356

PATIENT
  Age: 33 Year
  Sex: Female

DRUGS (6)
  1. DUPIXENT [Suspect]
     Active Substance: DUPILUMAB
     Indication: DERMATITIS ATOPIC
     Dosage: 300 MG, QOW
     Route: 058
     Dates: start: 20180907
  2. LORATADINE. [Concomitant]
     Active Substance: LORATADINE
  3. CLOBETASOL [Concomitant]
     Active Substance: CLOBETASOL
  4. MONTELUCAST [Concomitant]
     Active Substance: MONTELUKAST SODIUM
  5. RANITIDINE. [Concomitant]
     Active Substance: RANITIDINE
  6. ELIDEL [Concomitant]
     Active Substance: PIMECROLIMUS

REACTIONS (1)
  - Bacterial infection [Unknown]

NARRATIVE: CASE EVENT DATE: 20180927
